FAERS Safety Report 4899428-5 (Version None)
Quarter: 2006Q1

REPORT INFORMATION
  Report Type: 
  Country: None (occurrence: None)
  Receive Date: 20060131
  Receipt Date: 20060117
  Transmission Date: 20060701
  Serious: Yes (Hospitalization, Other)
  Sender: FDA-Public Use
  Company Number: A-CH2006-11467

PATIENT
  Age: 7 Year
  Sex: Female
  Weight: 22 kg

DRUGS (2)
  1. TRACLEER [Suspect]
     Indication: PULMONARY HYPERTENSION
     Dosage: 62.5 MG BID ORAL
     Route: 048
     Dates: start: 20031101
  2. SILDENAFIL [Concomitant]

REACTIONS (8)
  - CYANOSIS [None]
  - EPILEPSY [None]
  - EYE DISORDER [None]
  - LOSS OF CONSCIOUSNESS [None]
  - MALAISE [None]
  - SUDDEN ONSET OF SLEEP [None]
  - SYNCOPE VASOVAGAL [None]
  - VOMITING [None]
